FAERS Safety Report 12420441 (Version 2)
Quarter: 2016Q3

REPORT INFORMATION
  Report Type: Spontaneous
  Country: None (occurrence: US)
  Receive Date: 20160531
  Receipt Date: 20160718
  Transmission Date: 20161109
  Serious: No
  Sender: FDA-Public Use
  Company Number: US-MEDAC PHARMA, INC.-1052959

PATIENT
  Age: 27 Year
  Sex: Female

DRUGS (1)
  1. RASUVO [Suspect]
     Active Substance: METHOTREXATE SODIUM
     Indication: RHEUMATOID ARTHRITIS
     Route: 058
     Dates: start: 20160301, end: 20160502

REACTIONS (3)
  - Disturbance in attention [Recovering/Resolving]
  - Nausea [Recovered/Resolved]
  - Feeling abnormal [Recovering/Resolving]
